FAERS Safety Report 26199795 (Version 1)
Quarter: 2025Q4

REPORT INFORMATION
  Report Type: Report from Study
  Country: CA (occurrence: CA)
  Receive Date: 20251225
  Receipt Date: 20251225
  Transmission Date: 20260117
  Serious: Yes (Other)
  Sender: TAKEDA
  Company Number: CA-TAKEDA-2025TUS116542

PATIENT
  Age: 67 Year
  Sex: Female

DRUGS (4)
  1. VEDOLIZUMAB [Suspect]
     Active Substance: VEDOLIZUMAB
     Indication: Colitis ulcerative
     Dosage: 300 MILLIGRAM, Q4WEEKS
     Dates: start: 20250325
  2. ALENDRONATE [Concomitant]
     Active Substance: ALENDRONATE SODIUM
     Dosage: UNK
  3. PREMARIN [Concomitant]
     Active Substance: ESTROGENS, CONJUGATED
     Dosage: UNK
  4. MESALAMINE [Concomitant]
     Active Substance: MESALAMINE
     Dosage: 3600 MILLIGRAM

REACTIONS (1)
  - Skin cancer [Recovering/Resolving]
